FAERS Safety Report 15267061 (Version 1)
Quarter: 2018Q3

REPORT INFORMATION
  Report Type: Report from Study
  Country: None (occurrence: US)
  Receive Date: 20180810
  Receipt Date: 20180810
  Transmission Date: 20181010
  Serious: Yes (Other)
  Sender: FDA-Public Use
  Company Number: US-ABBVIE-18K-163-2443528-00

PATIENT
  Sex: Female

DRUGS (1)
  1. HUMIRA [Suspect]
     Active Substance: ADALIMUMAB
     Indication: CROHN^S DISEASE
     Route: 058
     Dates: start: 20160105

REACTIONS (5)
  - Muscle spasms [Unknown]
  - Vitamin B12 decreased [Unknown]
  - Anaemia [Unknown]
  - Diarrhoea [Unknown]
  - Crohn^s disease [Unknown]
